FAERS Safety Report 9150087 (Version 2)
Quarter: 2013Q2

REPORT INFORMATION
  Report Type: Spontaneous
  Country: US (occurrence: US)
  Receive Date: 20130308
  Receipt Date: 20130508
  Transmission Date: 20140414
  Serious: Yes (Hospitalization, Other)
  Sender: FDA-Public Use
  Company Number: US-PFIZER INC-2013076197

PATIENT
  Age: 68 Year
  Sex: Female

DRUGS (10)
  1. PREMARIN [Suspect]
     Indication: MENOPAUSE
     Dosage: UNK
     Dates: end: 201107
  2. PREMARIN [Suspect]
     Indication: MENOPAUSAL DEPRESSION
  3. PREMARIN [Suspect]
     Indication: ANXIETY
  4. PREMARIN [Suspect]
     Indication: HORMONE REPLACEMENT THERAPY
  5. PROVERA [Suspect]
     Indication: PREVENTION OF ENDOMETRIAL HYPERPLASIA
     Dosage: UNK
     Dates: end: 201107
  6. DIVIGEL [Suspect]
     Indication: MENOPAUSE
     Dosage: 1 MG, 1X/DAY
     Route: 062
     Dates: start: 201107
  7. DIVIGEL [Suspect]
     Indication: MENOPAUSAL DEPRESSION
  8. DIVIGEL [Suspect]
     Indication: ANXIETY
  9. PROMETRIUM [Suspect]
     Indication: PREVENTION OF ENDOMETRIAL HYPERPLASIA
     Dosage: 200 MG, 1X/DAY, 1-12 EACH MONTH
     Route: 048
     Dates: start: 201107
  10. PROMETRIUM [Suspect]
     Dosage: 200 MG, ON DAYS 1-12, EVERY 3 MONTHS
     Route: 048
     Dates: start: 201212, end: 20130219

REACTIONS (2)
  - Endometrial cancer stage I [Recovered/Resolved]
  - Breast cancer [Unknown]
